FAERS Safety Report 6048653-9 (Version None)
Quarter: 2009Q1

REPORT INFORMATION
  Report Type: 
  Country: None (occurrence: None)
  Receive Date: 20090123
  Receipt Date: 20090116
  Transmission Date: 20090719
  Serious: Yes (Hospitalization)
  Sender: FDA-Public Use
  Company Number: JP-AVENTIS-200910024JP

PATIENT
  Age: 77 Year
  Sex: Female

DRUGS (5)
  1. LASIX [Suspect]
     Route: 048
     Dates: start: 20070501
  2. ALDACTONE [Suspect]
     Route: 048
  3. CRESTOR [Concomitant]
  4. ACINON [Concomitant]
  5. DORNER [Concomitant]

REACTIONS (1)
  - HYPOGLYCAEMIA [None]
